FAERS Safety Report 5635668-5 (Version None)
Quarter: 2008Q1

REPORT INFORMATION
  Report Type: 
  Country: None (occurrence: None)
  Receive Date: 20080223
  Receipt Date: 20080213
  Transmission Date: 20080703
  Serious: Yes (Hospitalization)
  Sender: FDA-Public Use
  Company Number: JP-ELI_LILLY_AND_COMPANY-JP200801005298

PATIENT
  Age: 48 Year
  Sex: Male

DRUGS (2)
  1. HUMALOG [Suspect]
     Dosage: 4 U, 3/D
     Route: 058
     Dates: start: 20071201
  2. LANTUS [Concomitant]
     Dosage: 10 U, DAILY (1/D)
     Route: 058
     Dates: start: 20071227

REACTIONS (1)
  - HEPATIC FUNCTION ABNORMAL [None]
